FAERS Safety Report 24720552 (Version 2)
Quarter: 2024Q4

REPORT INFORMATION
  Report Type: Spontaneous
  Country: US (occurrence: US)
  Receive Date: 20241211
  Receipt Date: 20241226
  Transmission Date: 20250114
  Serious: No
  Sender: LUPIN
  Company Number: US-LUPIN PHARMACEUTICALS INC.-2024-11774

PATIENT

DRUGS (2)
  1. ALBUTEROL SULFATE [Suspect]
     Active Substance: ALBUTEROL SULFATE
     Indication: Sinus disorder
     Dosage: UNK, 2 PUFFS EVERY 4 TO 5 HOURS (ONCE A DAY IN THE MORNING AND AT NIGHT)
     Dates: start: 202411
  2. ALBUTEROL SULFATE [Suspect]
     Active Substance: ALBUTEROL SULFATE
     Indication: Cough
     Dosage: UNK, 2 PUFFS EVERY 4 TO 5 HOURS (ONCE A DAY IN THE MORNING AND AT NIGHT)
     Dates: start: 202411

REACTIONS (3)
  - Product use in unapproved indication [Unknown]
  - Wrong technique in product usage process [Unknown]
  - No adverse event [Unknown]
